FAERS Safety Report 11602010 (Version 1)
Quarter: 2015Q4

REPORT INFORMATION
  Report Type: Spontaneous
  Country: US (occurrence: US)
  Receive Date: 20151006
  Receipt Date: 20151006
  Transmission Date: 20160304
  Serious: No
  Sender: FDA-Public Use
  Company Number: US-AMGEN-USASP2015043445

PATIENT
  Age: 74 Year
  Sex: Female

DRUGS (4)
  1. VITAMIN K2                         /00357701/ [Concomitant]
     Dosage: UNK
  2. PROLIA [Suspect]
     Active Substance: DENOSUMAB
     Indication: PRODUCT USED FOR UNKNOWN INDICATION
     Dosage: 60 MG, UNK
     Route: 058
     Dates: start: 20150429
  3. VITAMIN D3 [Concomitant]
     Active Substance: CHOLECALCIFEROL
  4. KLONOPIN [Concomitant]
     Active Substance: CLONAZEPAM
     Dosage: 0.75 MG, QD

REACTIONS (24)
  - Mucous membrane disorder [Unknown]
  - Pruritus [Unknown]
  - Headache [Unknown]
  - Eye disorder [Unknown]
  - Pain [Not Recovered/Not Resolved]
  - Oral discomfort [Unknown]
  - Sneezing [Unknown]
  - Feeling abnormal [Unknown]
  - Dizziness [Unknown]
  - Back pain [Unknown]
  - Arthralgia [Not Recovered/Not Resolved]
  - Ear discomfort [Unknown]
  - Feeding disorder [Unknown]
  - Constipation [Not Recovered/Not Resolved]
  - Vision blurred [Unknown]
  - Red blood cells urine [Unknown]
  - Quality of life decreased [Unknown]
  - Rash [Unknown]
  - Mouth ulceration [Unknown]
  - Nasal congestion [Unknown]
  - Cough [Unknown]
  - Intentional product misuse [Unknown]
  - Muscular weakness [Unknown]
  - Gastrointestinal tract irritation [Unknown]

NARRATIVE: CASE EVENT DATE: 2015
